FAERS Safety Report 5325366-X (Version None)
Quarter: 2007Q2

REPORT INFORMATION
  Report Type: 
  Country: None (occurrence: None)
  Receive Date: 20070515
  Receipt Date: 20070507
  Transmission Date: 20071010
  Serious: Yes (Other)
  Sender: FDA-Public Use
  Company Number: US-JNJFOC-20070502219

PATIENT
  Sex: Male
  Weight: 97.52 kg

DRUGS (6)
  1. REMICADE [Suspect]
     Indication: RHEUMATOID ARTHRITIS
     Route: 042
  2. PLAVIX [Concomitant]
     Indication: CARDIAC DISORDER
     Dates: start: 19940101
  3. HYZAAR [Concomitant]
     Indication: BLOOD PRESSURE
     Dates: start: 19940101
  4. ZOCOR [Concomitant]
     Indication: BLOOD CHOLESTEROL
     Dates: start: 19940101
  5. SYNTHROID [Concomitant]
     Indication: THYROID DISORDER
     Dates: start: 19940101
  6. TESTOSTERONE [Concomitant]
     Route: 050

REACTIONS (3)
  - MEMORY IMPAIRMENT [None]
  - MOOD SWINGS [None]
  - SINUSITIS [None]
